FAERS Safety Report 4585728-5 (Version None)
Quarter: 2005Q1

REPORT INFORMATION
  Report Type: 
  Country: None (occurrence: None)
  Receive Date: 20050214
  Receipt Date: 20041018
  Transmission Date: 20050727
  Serious: Yes (Hospitalization)
  Sender: FDA-Public Use
  Company Number: 05-102

PATIENT
  Age: 78 Year
  Sex: Male

DRUGS (17)
  1. DEXAMETHASONE [Suspect]
     Indication: MYELOMA RECURRENCE
     Dosage: 40 MG/DAY, ORAL
     Route: 048
     Dates: start: 20021128, end: 20021229
  2. GENASENSE [Suspect]
     Indication: MYELOMA RECURRENCE
     Dosage: 7 MG/KG/DAY, INTRAVENOUS
     Route: 042
     Dates: start: 20021111, end: 20021230
  3. CEFTAZIDIME [Concomitant]
  4. IBUPROFEN [Concomitant]
  5. ASPIRIN [Concomitant]
  6. RANITIDINE [Concomitant]
  7. TRIMETHOPRIM-SULFAMETHOXAZOLE [Concomitant]
  8. TEMAZEPAM [Concomitant]
  9. TAMSULOSIN [Concomitant]
  10. MULTI-VITAMIN [Concomitant]
  11. VITAMIN C [Concomitant]
  12. VITAMIN E [Concomitant]
  13. FLAX SEED [Concomitant]
  14. EPOETIN ALFA [Concomitant]
  15. PROCHLORPERAZINE [Concomitant]
  16. SIMVASTATIN [Concomitant]
  17. MORPHINE SULFATE [Concomitant]

REACTIONS (14)
  - ASTHENIA [None]
  - BOWEL SOUNDS ABNORMAL [None]
  - CONSTIPATION [None]
  - DECREASED APPETITE [None]
  - DEHYDRATION [None]
  - DIARRHOEA [None]
  - NAUSEA [None]
  - ORAL CANDIDIASIS [None]
  - PAIN [None]
  - PYREXIA [None]
  - TACHYCARDIA [None]
  - TREMOR [None]
  - VOMITING [None]
  - WEIGHT DECREASED [None]
